FAERS Safety Report 25503727 (Version 1)
Quarter: 2025Q3

REPORT INFORMATION
  Report Type: Spontaneous
  Country: US (occurrence: US)
  Receive Date: 20250702
  Receipt Date: 20250702
  Transmission Date: 20251021
  Serious: Yes (Other)
  Sender: AUROBINDO
  Company Number: US-MLMSERVICE-20250610-PI534463-00206-5

PATIENT
  Age: 13 Year
  Sex: Female

DRUGS (6)
  1. LORAZEPAM [Suspect]
     Active Substance: LORAZEPAM
     Indication: Catatonia
     Dosage: 1.5 MILLIGRAM, 3 TIMES A DAY
     Route: 065
     Dates: start: 202409, end: 202409
  2. LORAZEPAM [Suspect]
     Active Substance: LORAZEPAM
     Route: 065
     Dates: start: 202409, end: 202409
  3. LORAZEPAM [Suspect]
     Active Substance: LORAZEPAM
     Dosage: 1 MILLIGRAM, TWO TIMES A DAY (INCREASED)
     Route: 065
     Dates: start: 202409, end: 202409
  4. LORAZEPAM [Suspect]
     Active Substance: LORAZEPAM
     Dosage: 1 MILLIGRAM, 3 TIMES A DAY (INCREASED)
     Route: 065
     Dates: start: 202409, end: 202409
  5. QUETIAPINE [Suspect]
     Active Substance: QUETIAPINE
     Indication: Paranoia
     Dosage: 25 MILLIGRAM, ONCE A DAY
     Route: 048
     Dates: start: 202408, end: 202409
  6. QUETIAPINE [Suspect]
     Active Substance: QUETIAPINE
     Indication: Affective disorder
     Dosage: 50 MILLIGRAM, ONCE A DAY
     Route: 048
     Dates: start: 202409, end: 202409

REACTIONS (2)
  - Sedation complication [Unknown]
  - Hypotension [Unknown]

NARRATIVE: CASE EVENT DATE: 20240901
